FAERS Safety Report 8383050-2 (Version None)
Quarter: 2012Q2

REPORT INFORMATION
  Report Type: 
  Country: None (occurrence: None)
  Receive Date: 20120524
  Receipt Date: 20120521
  Transmission Date: 20120825
  Serious: Yes (Hospitalization)
  Sender: FDA-Public Use
  Company Number: PHHO2011AT021756

PATIENT
  Sex: Male
  Weight: 85 kg

DRUGS (8)
  1. TORSEMIDE [Concomitant]
     Indication: CARDIAC FAILURE CHRONIC
     Dosage: 10 MG, BID
     Route: 048
     Dates: start: 20080930
  2. EPLERENONE [Concomitant]
     Indication: CARDIAC FAILURE CHRONIC
     Dosage: 50 MG, QD
     Route: 048
     Dates: start: 20100101
  3. ALISKIREN [Suspect]
     Indication: CARDIAC FAILURE
     Dosage: UNK
     Route: 048
     Dates: start: 20101210
  4. MARCOUMAR [Concomitant]
     Indication: ATRIAL FIBRILLATION
     Dosage: ON DEMAND
     Dates: start: 20020101, end: 20120325
  5. METOPROLOL [Concomitant]
     Indication: CARDIAC FAILURE CHRONIC
     Dosage: 47.5 MG, QD
     Route: 048
     Dates: start: 20080101
  6. ENALAPRIL MALEATE [Suspect]
     Indication: CARDIAC FAILURE
     Dosage: UNK
     Dates: start: 20101210
  7. DIGOXIN [Concomitant]
     Indication: ATRIAL FIBRILLATION
     Dosage: 0.1 MG, QD
     Route: 048
     Dates: start: 20020101
  8. ALLOPURINOL [Concomitant]
     Indication: HYPERURICAEMIA
     Dosage: 10 MG, QD
     Route: 048
     Dates: start: 20080101

REACTIONS (1)
  - CARDIAC FAILURE [None]
